FAERS Safety Report 4855760-2 (Version None)
Quarter: 2005Q4

REPORT INFORMATION
  Report Type: 
  Country: None (occurrence: None)
  Receive Date: 20051215
  Receipt Date: 20051215
  Transmission Date: 20060501
  Serious: Yes (Hospitalization, Disabling, Other)
  Sender: FDA-Public Use
  Company Number: None

PATIENT
  Age: 51 Year
  Sex: Female

DRUGS (10)
  1. CORICIDIN D SRT [Suspect]
     Indication: HYPERSENSITIVITY
     Dosage: 2 TABS ORAL
     Route: 048
     Dates: start: 19961219, end: 19961219
  2. CORICIDIN D SRT [Suspect]
     Indication: NASOPHARYNGITIS
     Dosage: 2 TABS ORAL
     Route: 048
     Dates: start: 19961219, end: 19961219
  3. ALLEREST TABLETS [Suspect]
     Indication: HYPERSENSITIVITY
     Dosage: ONE CAP ORAL
     Route: 048
     Dates: start: 19961217, end: 19961217
  4. ALLEREST TABLETS [Suspect]
     Indication: NASOPHARYNGITIS
     Dosage: ONE CAP ORAL
     Route: 048
     Dates: start: 19961217, end: 19961217
  5. ROBITUSSIN-CF SYRUP [Suspect]
     Indication: HYPERSENSITIVITY
     Dosage: 1 TSP ORAL
     Route: 048
     Dates: start: 19961219, end: 19961219
  6. ROBITUSSIN-CF SYRUP [Suspect]
     Indication: NASOPHARYNGITIS
     Dosage: 1 TSP ORAL
     Route: 048
     Dates: start: 19961219, end: 19961219
  7. CONTAC 12 HOUR [Suspect]
     Dosage: 1 CAP ORAL
     Route: 048
     Dates: start: 19961218, end: 19961218
  8. ANTICOAGULANTS (NOS) [Concomitant]
  9. PROVERA [Concomitant]
  10. PREMARIN [Concomitant]

REACTIONS (9)
  - COGNITIVE DISORDER [None]
  - CONVULSION [None]
  - DISABILITY [None]
  - FEAR [None]
  - INJURY [None]
  - ISCHAEMIC STROKE [None]
  - NERVOUS SYSTEM DISORDER [None]
  - PAIN [None]
  - SINUS CONGESTION [None]
